FAERS Safety Report 19780318 (Version 1)
Quarter: 2021Q3

REPORT INFORMATION
  Report Type: Report from Study
  Country: CA (occurrence: CA)
  Receive Date: 20210902
  Receipt Date: 20210902
  Transmission Date: 20211014
  Serious: Yes (Death)
  Sender: FDA-Public Use
  Company Number: CA-JNJFOC-20210861482

PATIENT
  Age: 73 Year
  Sex: Male

DRUGS (1)
  1. SIMPONI [Suspect]
     Active Substance: GOLIMUMAB
     Indication: PRODUCT USED FOR UNKNOWN INDICATION
     Dosage: PATIENT INJECTED IN JULY
     Route: 058

REACTIONS (7)
  - Renal neoplasm [Fatal]
  - Nephrolithiasis [Fatal]
  - Pneumonia [Fatal]
  - Cholelithiasis [Fatal]
  - Degenerative bone disease [Fatal]
  - Diverticulitis [Fatal]
  - Lung neoplasm [Fatal]
